FAERS Safety Report 9175706 (Version 1)
Quarter: 2013Q1

REPORT INFORMATION
  Report Type: Report from Study
  Country: IT (occurrence: IT)
  Receive Date: 20130320
  Receipt Date: 20130320
  Transmission Date: 20140127
  Serious: Yes (Other)
  Sender: FDA-Public Use
  Company Number: PHHY2013IT022984

PATIENT
  Age: 62 Year
  Sex: Male

DRUGS (1)
  1. CERTICAN [Suspect]
     Indication: HEART TRANSPLANT
     Dosage: 5 MG, UNK
     Route: 048

REACTIONS (2)
  - Renal failure chronic [Unknown]
  - Osteoarthritis [Unknown]
